FAERS Safety Report 4592787-2 (Version None)
Quarter: 2005Q1

REPORT INFORMATION
  Report Type: 
  Country: None (occurrence: None)
  Receive Date: 20050222
  Receipt Date: 20050203
  Transmission Date: 20050727
  Serious: No
  Sender: FDA-Public Use
  Company Number: A04200500046

PATIENT
  Age: 63 Year
  Sex: Male

DRUGS (1)
  1. ELOXATIN [Suspect]
     Indication: COLON CANCER
     Dosage: 85.15 MG/M2 OTHER, INTRAVENOUS DRIP A
     Route: 041
     Dates: start: 20050104, end: 20050104

REACTIONS (5)
  - CHEST PAIN [None]
  - CONVULSION [None]
  - DYSPNOEA [None]
  - HYPERTENSION [None]
  - NEUROTOXICITY [None]
